FAERS Safety Report 4596953-1 (Version None)
Quarter: 2005Q1

REPORT INFORMATION
  Report Type: 
  Country: None (occurrence: None)
  Receive Date: 20050228
  Receipt Date: 20050218
  Transmission Date: 20050727
  Serious: Yes (Other)
  Sender: FDA-Public Use
  Company Number: 2005-125146-NL

PATIENT
  Age: 39 Year
  Sex: Female
  Weight: 82.3 kg

DRUGS (1)
  1. NUVARING [Suspect]
     Indication: CONTRACEPTION
     Dosage: VAGINAL
     Route: 067
     Dates: start: 20040701

REACTIONS (11)
  - ANORGASMIA [None]
  - BACK PAIN [None]
  - CERVIX HAEMORRHAGE UTERINE [None]
  - CHILLS [None]
  - DEPRESSED MOOD [None]
  - DRUG INEFFECTIVE [None]
  - DYSPAREUNIA [None]
  - HEADACHE [None]
  - HERPES ZOSTER [None]
  - INFLUENZA LIKE ILLNESS [None]
  - VAGINAL DISCHARGE [None]
